FAERS Safety Report 14242394 (Version 1)
Quarter: 2017Q4

REPORT INFORMATION
  Report Type: Spontaneous
  Country: US (occurrence: US)
  Receive Date: 20171201
  Receipt Date: 20171201
  Transmission Date: 20180321
  Serious: No
  Sender: FDA-Public Use
  Company Number: US-PFIZER INC-2017512260

PATIENT

DRUGS (1)
  1. ZYVOX [Suspect]
     Active Substance: LINEZOLID
     Indication: OSTEOMYELITIS
     Dosage: UNK

REACTIONS (4)
  - Haemoglobin decreased [Not Recovered/Not Resolved]
  - Product use in unapproved indication [Unknown]
  - Full blood count decreased [Recovered/Resolved]
  - Haematocrit decreased [Not Recovered/Not Resolved]
